FAERS Safety Report 9284625 (Version 2)
Quarter: 2013Q2

REPORT INFORMATION
  Report Type: Spontaneous
  Country: DE (occurrence: DE)
  Receive Date: 20130513
  Receipt Date: 20130626
  Transmission Date: 20140414
  Serious: Yes (Life-Threatening, Other)
  Sender: FDA-Public Use
  Company Number: DE-AMGEN-DEUSP2013032875

PATIENT
  Age: 61 Year
  Sex: Male
  Weight: 78 kg

DRUGS (5)
  1. ENBREL [Suspect]
     Indication: RHEUMATOID ARTHRITIS
     Dosage: 50 MG, WEEKLY
     Route: 058
     Dates: start: 201212, end: 201301
  2. METHOTREXAT                        /00113801/ [Concomitant]
     Indication: RHEUMATOID ARTHRITIS
     Dosage: 5 MG, WEEKLY
     Route: 058
     Dates: start: 2005, end: 201301
  3. BELOC ZOK [Concomitant]
     Indication: HYPOTENSION
     Dosage: 45.5 MUG, UNK
  4. VOTUM                              /01635402/ [Concomitant]
     Indication: HYPOTENSION
     Dosage: 20 UG, UNK
     Route: 048
  5. LEFLUNOMIDE [Concomitant]
     Dosage: 20 MG, 1X/DAY
     Dates: start: 2006, end: 201211

REACTIONS (4)
  - Pyrexia [Not Recovered/Not Resolved]
  - B-cell lymphoma [Not Recovered/Not Resolved]
  - Lymphadenopathy [Not Recovered/Not Resolved]
  - Epstein-Barr virus infection [Not Recovered/Not Resolved]
